FAERS Safety Report 4675383-8 (Version None)
Quarter: 2005Q2

REPORT INFORMATION
  Report Type: 
  Country: None (occurrence: None)
  Receive Date: 20050527
  Receipt Date: 20050211
  Transmission Date: 20051028
  Serious: No
  Sender: FDA-Public Use
  Company Number: US-BRISTOL-MYERS SQUIBB COMPANY-12860300

PATIENT
  Age: 8 Year
  Sex: Male

DRUGS (4)
  1. ABILIFY [Suspect]
     Route: 048
     Dates: start: 20050110, end: 20050112
  2. METHYLPHENIDATE HCL [Concomitant]
     Dates: start: 20050110, end: 20050210
  3. RITALIN [Concomitant]
     Dates: start: 20050110, end: 20050210
  4. MELATONIN [Concomitant]
     Dates: start: 20050110

REACTIONS (1)
  - FAECES DISCOLOURED [None]
